FAERS Safety Report 8417558-8 (Version None)
Quarter: 2012Q2

REPORT INFORMATION
  Report Type: 
  Country: None (occurrence: None)
  Receive Date: 20120606
  Receipt Date: 20120529
  Transmission Date: 20120825
  Serious: Yes (Other)
  Sender: FDA-Public Use
  Company Number: US-ELI_LILLY_AND_COMPANY-US201205001192

PATIENT
  Sex: Female

DRUGS (9)
  1. LINAGLIPTIN [Concomitant]
     Indication: TYPE 2 DIABETES MELLITUS
     Dosage: 5 MG, QD
     Dates: end: 20120501
  2. BYETTA [Suspect]
     Dosage: 5 UG, QD
     Route: 058
  3. BYETTA [Suspect]
     Dosage: 5 UG, BID
     Route: 058
  4. BYETTA [Suspect]
     Dosage: 5 UG, QD
     Route: 058
     Dates: end: 20110809
  5. BYDUREON [Concomitant]
     Indication: TYPE 2 DIABETES MELLITUS
     Dosage: 2 MG, WEEKLY (1/W)
     Route: 058
     Dates: start: 20120502
  6. LISINOPRIL                              /USA/ [Concomitant]
  7. BYETTA [Suspect]
     Dosage: 10 UG, QD
     Route: 058
  8. BYETTA [Suspect]
     Indication: TYPE 2 DIABETES MELLITUS
     Dosage: 5 UG, BID
     Route: 058
     Dates: start: 20101019
  9. LIPITOR [Concomitant]

REACTIONS (8)
  - ANXIETY [None]
  - PALPITATIONS [None]
  - THYROID NEOPLASM [None]
  - THYROID DISORDER [None]
  - AUTOIMMUNE THYROIDITIS [None]
  - BLOOD GLUCOSE DECREASED [None]
  - PANIC ATTACK [None]
  - MENOPAUSE [None]
